FAERS Safety Report 14708326 (Version 3)
Quarter: 2018Q2

REPORT INFORMATION
  Report Type: Spontaneous
  Country: DE (occurrence: DE)
  Receive Date: 20180403
  Receipt Date: 20180509
  Transmission Date: 20180711
  Serious: Yes (Hospitalization, Other)
  Sender: FDA-Public Use
  Company Number: DE-AUROBINDO-AUR-APL-2018-017354

PATIENT
  Age: 31 Year
  Sex: Female

DRUGS (4)
  1. SUFENTANIL [Suspect]
     Active Substance: SUFENTANIL
     Indication: LOCAL ANAESTHESIA
     Dosage: 0.6ML OF SUFENTANIL EPIDURAL 3?G,
     Route: 008
  2. BUPIVACAINE. [Suspect]
     Active Substance: BUPIVACAINE
     Indication: SPINAL ANAESTHESIA
     Dosage: 1.6ML
     Route: 008
  3. BUPIVACAINE. [Suspect]
     Active Substance: BUPIVACAINE
     Indication: LOCAL ANAESTHESIA
     Dosage: UNK
     Route: 065
  4. SUFENTANIL [Suspect]
     Active Substance: SUFENTANIL
     Indication: SPINAL ANAESTHESIA

REACTIONS (13)
  - Hyperaesthesia [Recovered/Resolved]
  - Tethered cord syndrome [Recovering/Resolving]
  - Product administered at inappropriate site [Recovering/Resolving]
  - Medication error [Recovered/Resolved]
  - Traumatic lumbar puncture [Recovering/Resolving]
  - Maternal exposure during pregnancy [Recovering/Resolving]
  - Dysuria [Recovered/Resolved]
  - Wrong technique in product usage process [Recovering/Resolving]
  - Spinal cord haemorrhage [Recovering/Resolving]
  - Dysaesthesia [Recovered/Resolved]
  - Hyperpathia [Recovered/Resolved]
  - Haemorrhage [Recovered/Resolved]
  - Pain in extremity [Recovered/Resolved]
